FAERS Safety Report 15624582 (Version 3)
Quarter: 2019Q1

REPORT INFORMATION
  Report Type: Spontaneous
  Country: JP (occurrence: JP)
  Receive Date: 20181116
  Receipt Date: 20190215
  Transmission Date: 20190417
  Serious: Yes (Hospitalization, Other)
  Sender: FDA-Public Use
  Company Number: JP-BRISTOL-MYERS SQUIBB COMPANY-BMS-2018-015545

PATIENT
  Age: 66 Year
  Sex: Male
  Weight: 37.7 kg

DRUGS (2)
  1. OPDIVO [Suspect]
     Active Substance: NIVOLUMAB
     Indication: HEAD AND NECK CANCER METASTATIC
     Dosage: 3 MG/KG, Q2WK
     Route: 041
     Dates: start: 20170928, end: 20171124
  2. OPDIVO [Suspect]
     Active Substance: NIVOLUMAB
     Indication: HYPOPHARYNGEAL CANCER
     Route: 065

REACTIONS (6)
  - Diarrhoea [Not Recovered/Not Resolved]
  - Glossopharyngeal nerve paralysis [Not Recovered/Not Resolved]
  - Adrenocortical insufficiency acute [Recovering/Resolving]
  - Adrenal insufficiency [Recovering/Resolving]
  - Pyrexia [Not Recovered/Not Resolved]
  - Vagus nerve paralysis [Not Recovered/Not Resolved]

NARRATIVE: CASE EVENT DATE: 20171027
